FAERS Safety Report 7375478-4 (Version None)
Quarter: 2011Q1

REPORT INFORMATION
  Report Type: 
  Country: None (occurrence: None)
  Receive Date: 20110325
  Receipt Date: 20110317
  Transmission Date: 20110831
  Serious: Yes (Death, Other)
  Sender: FDA-Public Use
  Company Number: JP-AMGEN-JPNCT2011016052

PATIENT
  Age: 68 Year
  Sex: Female
  Weight: 40 kg

DRUGS (8)
  1. FLUOROURACIL [Concomitant]
     Indication: COLORECTAL CANCER
     Route: 040
     Dates: start: 20100901
  2. CALCIUM LEVOFOLINATE [Concomitant]
     Indication: COLORECTAL CANCER
     Route: 041
     Dates: start: 20100901
  3. PANITUMUMAB [Suspect]
     Indication: COLORECTAL CANCER
     Dosage: 6 MG/KG, Q2WK
     Route: 041
     Dates: start: 20100728
  4. LOPEMIN [Concomitant]
     Dosage: UNK
     Route: 048
  5. LOXOPROFEN [Concomitant]
     Dosage: UNK
     Route: 048
  6. FLUOROURACIL [Concomitant]
     Route: 041
     Dates: start: 20100901
  7. CAMPTOSAR [Suspect]
     Indication: COLORECTAL CANCER
     Route: 041
     Dates: start: 20100901
  8. CORTICOSTEROIDS [Concomitant]
     Indication: PROPHYLAXIS
     Route: 065

REACTIONS (7)
  - RASH [None]
  - COLORECTAL CANCER [None]
  - DECREASED APPETITE [None]
  - DRY SKIN [None]
  - DRY MOUTH [None]
  - STOMATITIS [None]
  - DIARRHOEA [None]
